FAERS Safety Report 18583612 (Version 15)
Quarter: 2021Q3

REPORT INFORMATION
  Report Type: Report from Study
  Country: FR (occurrence: FR)
  Receive Date: 20201207
  Receipt Date: 20210922
  Transmission Date: 20211014
  Serious: Yes (Hospitalization)
  Sender: FDA-Public Use
  Company Number: FR-ROCHE-2724225

PATIENT
  Age: 77 Year
  Sex: Female
  Weight: 57.5 kg

DRUGS (17)
  1. CARBOPLATIN. [Suspect]
     Active Substance: CARBOPLATIN
     Indication: MALIGNANT NEOPLASM OF UNKNOWN PRIMARY SITE
     Dosage: DOSE OF LAST INDUCTION STUDY DRUG 1 ADMINISTERED PRIOR TO SAE/AESI ONSET 490?DATE OF LAST DOSE OF IN
     Route: 042
     Dates: start: 20190923
  2. CARBOPLATIN. [Suspect]
     Active Substance: CARBOPLATIN
     Dosage: DOSE OF LAST TREATMENT STUDY DRUG 2 ADMINISTERED PRIOR TO SAE/AESI ONSET 370?DATE OF LAST DOSE OF TR
     Route: 042
     Dates: start: 20200210
  3. IMODIUM [Concomitant]
     Active Substance: LOPERAMIDE HYDROCHLORIDE
     Indication: DIARRHOEA
     Route: 048
     Dates: start: 20200824, end: 20201201
  4. HYDROXYZINE [Concomitant]
     Active Substance: HYDROXYZINE HYDROCHLORIDE
     Indication: ANXIETY
     Route: 048
     Dates: start: 20201201
  5. UVEDOSE [Concomitant]
     Active Substance: CHOLECALCIFEROL
     Route: 048
     Dates: start: 20201127
  6. NEFOPAM HYDROCHLORIDE [Concomitant]
     Active Substance: NEFOPAM HYDROCHLORIDE
     Indication: DIARRHOEA
     Route: 048
     Dates: start: 20201126, end: 20201201
  7. ATEZOLIZUMAB. [Suspect]
     Active Substance: ATEZOLIZUMAB
     Indication: MALIGNANT NEOPLASM OF UNKNOWN PRIMARY SITE
     Dosage: ON 26/OCT/2020, LAST DOSE OF ATEZOLIZUMAB ADMINISTERED PRIOR TO SAE/AESI ONSET 1200
     Route: 041
     Dates: start: 20201026
  8. LYRICA [Concomitant]
     Active Substance: PREGABALIN
     Indication: NEUROPATHY PERIPHERAL
     Route: 048
     Dates: start: 20191227
  9. ALPROZOLAM [Concomitant]
     Active Substance: ALPRAZOLAM
     Indication: ANXIETY
     Route: 048
     Dates: start: 20191227
  10. XYZALL [Concomitant]
     Active Substance: LEVOCETIRIZINE DIHYDROCHLORIDE
     Indication: RASH PRURITIC
     Route: 048
     Dates: start: 20200706
  11. LOPERAMIDE [Concomitant]
     Active Substance: LOPERAMIDE
     Indication: DIARRHOEA
     Route: 048
  12. PARACETAMOL [Concomitant]
     Active Substance: ACETAMINOPHEN
     Indication: PROPHYLAXIS
     Route: 048
     Dates: start: 20201201
  13. PACLITAXEL. [Suspect]
     Active Substance: PACLITAXEL
     Dosage: LAST DOSE OF 216 MG TREATMENT STUDY DRUG PRIOR TO SAE ONSET 10/FEB/2020
     Route: 042
     Dates: start: 20200210
  14. BICARBONATE [Concomitant]
     Active Substance: SODIUM BICARBONATE
     Indication: DYSGEUSIA
     Route: 048
     Dates: start: 20200824
  15. PACLITAXEL. [Suspect]
     Active Substance: PACLITAXEL
     Indication: MALIGNANT NEOPLASM OF UNKNOWN PRIMARY SITE
     Dosage: DOSE OF LAST INDUCTION STUDY DRUG 2 ADMINISTERED PRIOR TO SAE/AESI ONSET 288?DATE OF LAST DOSE OF IN
     Route: 042
     Dates: start: 20190923
  16. RACECADOTRIL [Concomitant]
     Active Substance: RACECADOTRIL
     Indication: DIARRHOEA
     Route: 048
  17. DEXERYL (FRANCE) [Concomitant]
     Active Substance: GLYCERIN\MINERAL OIL\PETROLATUM
     Indication: DRY SKIN
     Route: 061
     Dates: start: 20200824

REACTIONS (1)
  - Diabetes mellitus [Recovering/Resolving]

NARRATIVE: CASE EVENT DATE: 20201026
